FAERS Safety Report 4512317-0 (Version None)
Quarter: 2004Q4

REPORT INFORMATION
  Report Type: 
  Country: None (occurrence: None)
  Receive Date: 20041129
  Receipt Date: 20041116
  Transmission Date: 20050328
  Serious: Yes (Other)
  Sender: FDA-Public Use
  Company Number: GB-GLAXOSMITHKLINE-B0357185A

PATIENT
  Age: 57 Year
  Sex: Female
  Weight: 58 kg

DRUGS (4)
  1. ZYBAN [Suspect]
     Route: 048
     Dates: start: 20040828, end: 20040904
  2. IPATROPIUM BROMIDE [Concomitant]
     Dosage: 40MCG THREE TIMES PER DAY
  3. CEFACLOR [Concomitant]
     Indication: UPPER RESPIRATORY TRACT INFECTION
     Dosage: 250MG THREE TIMES PER DAY
     Route: 048
     Dates: start: 20040823, end: 20040912
  4. VENTOLIN [Concomitant]
     Dosage: 250MCG AS REQUIRED

REACTIONS (7)
  - ASTHENIA [None]
  - CHEST DISCOMFORT [None]
  - DRY MOUTH [None]
  - FEELING ABNORMAL [None]
  - NAUSEA [None]
  - TREMOR [None]
  - VISION BLURRED [None]
